FAERS Safety Report 4746013-1 (Version None)
Quarter: 2005Q3

REPORT INFORMATION
  Report Type: 
  Country: None (occurrence: None)
  Receive Date: 20050816
  Receipt Date: 20050803
  Transmission Date: 20060218
  Serious: Yes (Death, Hospitalization)
  Sender: FDA-Public Use
  Company Number: PHNU2005DE02754

PATIENT
  Age: 63 Year
  Sex: Female
  Weight: 77 kg

DRUGS (3)
  1. STEROIDS NOS [Concomitant]
     Dosage: 2 MG/DAY
     Route: 048
     Dates: start: 19940406
  2. SANDIMMUNE [Suspect]
     Indication: RENAL TRANSPLANT
     Dosage: 125 MG/DAY
     Route: 048
  3. SANDIMMUNE [Suspect]
     Dosage: 175 MG/DAY
     Route: 048
     Dates: start: 19940406

REACTIONS (11)
  - BREAST CANCER FEMALE [None]
  - CONDITION AGGRAVATED [None]
  - HAEMORRHAGE [None]
  - LYMPHADENECTOMY [None]
  - MALIGNANT TUMOUR EXCISION [None]
  - MASTECTOMY [None]
  - METASTASES TO CENTRAL NERVOUS SYSTEM [None]
  - METASTASES TO LUNG [None]
  - METASTASIS [None]
  - PARENTERAL NUTRITION [None]
  - PLEURAL EFFUSION [None]
